FAERS Safety Report 5097516-4 (Version None)
Quarter: 2006Q3

REPORT INFORMATION
  Report Type: 
  Country: None (occurrence: None)
  Receive Date: 20060901
  Receipt Date: 20060817
  Transmission Date: 20061208
  Serious: Yes (Life-Threatening, Hospitalization)
  Sender: FDA-Public Use
  Company Number: IN200608004083

PATIENT
  Age: 55 Year
  Sex: Male

DRUGS (2)
  1. DROTRECOGIN ALFA (ACTIVATED) (DROTRECOGIN ALFA (ACTIVATED)) VIAL [Suspect]
     Indication: SEPSIS
     Dosage: 24, EVERY HOUR, INTRAVENOUS
     Route: 042
     Dates: start: 20060811, end: 20060813
  2. ANTIBIOTICS [Concomitant]

REACTIONS (2)
  - CONVULSION [None]
  - HAEMORRHAGE INTRACRANIAL [None]
